FAERS Safety Report 4330987-7 (Version None)
Quarter: 2004Q1

REPORT INFORMATION
  Report Type: 
  Country: None (occurrence: None)
  Receive Date: 20040331
  Receipt Date: 20040312
  Transmission Date: 20041129
  Serious: Yes (Hospitalization)
  Sender: FDA-Public Use
  Company Number: USA030433046

PATIENT
  Age: 85 Year
  Sex: Female
  Weight: 66 kg

DRUGS (1)
  1. FORTEO [Suspect]
     Dosage: 20 UG/DAY
     Dates: end: 20031201

REACTIONS (6)
  - ACCIDENTAL NEEDLE STICK [None]
  - ASTHENIA [None]
  - BONE DENSITY DECREASED [None]
  - DYSPEPSIA [None]
  - PHARMACEUTICAL PRODUCT COMPLAINT [None]
  - WEIGHT INCREASED [None]
